FAERS Safety Report 19095054 (Version 1)
Quarter: 2021Q2

REPORT INFORMATION
  Report Type: Report from Study
  Country: None (occurrence: US)
  Receive Date: 20210405
  Receipt Date: 20210405
  Transmission Date: 20210717
  Serious: Yes (Other)
  Sender: FDA-Public Use
  Company Number: US-ABBVIE-21K-163-3838645-00

PATIENT
  Age: 43 Year
  Sex: Male

DRUGS (1)
  1. HUMIRA [Suspect]
     Active Substance: ADALIMUMAB
     Indication: PSORIASIS
     Route: 058
     Dates: end: 20210317

REACTIONS (6)
  - Suicidal ideation [Recovered/Resolved]
  - Vomiting [Unknown]
  - Anger [Unknown]
  - Frustration tolerance decreased [Unknown]
  - Stress [Unknown]
  - Intentional self-injury [Unknown]

NARRATIVE: CASE EVENT DATE: 20210323
